FAERS Safety Report 25968354 (Version 1)
Quarter: 2025Q4

REPORT INFORMATION
  Report Type: Spontaneous
  Country: EU (occurrence: EU)
  Receive Date: 20251028
  Receipt Date: 20251028
  Transmission Date: 20260117
  Serious: Yes (Hospitalization, Other)
  Sender: EMD SERONO INC
  Company Number: EU-Merck Healthcare KGaA-2025052985

PATIENT
  Age: 71 Year
  Sex: Female
  Weight: 50 kg

DRUGS (8)
  1. EUTHYROX [Suspect]
     Active Substance: LEVOTHYROXINE SODIUM
     Indication: Post procedural hypothyroidism
  2. BISOPROLOL [Suspect]
     Active Substance: BISOPROLOL
     Indication: Atrial fibrillation
  3. RAMIPRIL [Suspect]
     Active Substance: RAMIPRIL
     Indication: Product used for unknown indication
  4. MAGNESIUM [Concomitant]
     Active Substance: MAGNESIUM
     Indication: Product used for unknown indication
  5. COPPER [Concomitant]
     Active Substance: COPPER
     Indication: Product used for unknown indication
  6. VITAMIN D3 [Concomitant]
     Active Substance: CHOLECALCIFEROL
     Indication: Product used for unknown indication
  7. VITAMIN C [Concomitant]
     Active Substance: ASCORBIC ACID
     Indication: Product used for unknown indication
  8. APIXABAN [Concomitant]
     Active Substance: APIXABAN
     Indication: Product used for unknown indication

REACTIONS (13)
  - Inflammation [Unknown]
  - Pleural effusion [Unknown]
  - Cough [Unknown]
  - Pulmonary mass [Unknown]
  - Atrial fibrillation [Unknown]
  - Weight decreased [Unknown]
  - Blood thyroid stimulating hormone increased [Unknown]
  - Oedema peripheral [Unknown]
  - Skin discolouration [Unknown]
  - Feeling cold [Unknown]
  - Histamine intolerance [Unknown]
  - Condition aggravated [Unknown]
  - Diarrhoea [Recovered/Resolved]

NARRATIVE: CASE EVENT DATE: 20250601
